FAERS Safety Report 19726347 (Version 3)
Quarter: 2021Q3

REPORT INFORMATION
  Report Type: Report from Study
  Country: US (occurrence: US)
  Receive Date: 20210819
  Receipt Date: 20210920
  Transmission Date: 20211014
  Serious: No
  Sender: FDA-Public Use
  Company Number: NVSC2021US184201

PATIENT
  Age: 83 Year
  Sex: Male

DRUGS (1)
  1. ENTRESTO [Suspect]
     Active Substance: SACUBITRIL\VALSARTAN
     Indication: PRODUCT USED FOR UNKNOWN INDICATION
     Dosage: 1 DF (97/103 MG), BID
     Route: 065
     Dates: start: 202008

REACTIONS (5)
  - Intervertebral disc protrusion [Unknown]
  - Procedural pain [Not Recovered/Not Resolved]
  - Wrong technique in product usage process [Unknown]
  - Weight decreased [Recovered/Resolved]
  - Back pain [Recovering/Resolving]

NARRATIVE: CASE EVENT DATE: 2021
